FAERS Safety Report 4664194-5 (Version None)
Quarter: 2005Q2

REPORT INFORMATION
  Report Type: 
  Country: None (occurrence: None)
  Receive Date: 20050516
  Receipt Date: 20050502
  Transmission Date: 20051028
  Serious: Yes (Hospitalization)
  Sender: FDA-Public Use
  Company Number: 2005070684

PATIENT
  Age: 27 Year
  Sex: Female
  Weight: 165 kg

DRUGS (1)
  1. VALDECOXIB [Suspect]
     Indication: PAIN
     Dosage: 40 MG, ORAL
     Route: 048
     Dates: start: 20050404, end: 20050405

REACTIONS (3)
  - ERYTHEMA NODOSUM [None]
  - OEDEMA PERIPHERAL [None]
  - PETECHIAE [None]
